FAERS Safety Report 6633018-9 (Version None)
Quarter: 2010Q1

REPORT INFORMATION
  Report Type: 
  Country: None (occurrence: None)
  Receive Date: 20100312
  Receipt Date: 20100309
  Transmission Date: 20100710
  Serious: Yes (Life-Threatening, Hospitalization)
  Sender: FDA-Public Use
  Company Number: GB-ROCHE-515936

PATIENT
  Sex: Female
  Weight: 65 kg

DRUGS (8)
  1. BEVACIZUMAB [Suspect]
     Dosage: ADMINISTERED ON DAY 1 EVERY 3 WEEKS.
     Route: 042
     Dates: start: 20070404, end: 20070903
  2. PACLITAXEL [Suspect]
     Dosage: ADMINISTERED ON DAY 1 EVERY 3 WEEKS.
     Route: 042
     Dates: start: 20070404, end: 20070718
  3. CARBOPLATIN [Suspect]
     Dosage: AREA UNDER THE CURVE 6, GIVEN OVER 30-60 MINUTES ON DAY 1 EVERY 3 WEEKS. DOSAGE FORM: INFUSION.
     Route: 042
     Dates: start: 20070404, end: 20070718
  4. LISINOPRIL [Concomitant]
     Route: 048
     Dates: start: 20070702
  5. LISINOPRIL [Concomitant]
     Route: 048
     Dates: start: 20070807
  6. LISINOPRIL [Concomitant]
     Route: 048
     Dates: start: 20070803
  7. PARACETAMOL [Concomitant]
     Dosage: START DATE REPORTED AS ^PRE-STUDY^
     Route: 048
  8. LANSOPRAZOLE [Concomitant]
     Route: 048
     Dates: start: 20070406

REACTIONS (6)
  - ABDOMINAL PAIN [None]
  - DIARRHOEA [None]
  - INTESTINAL ISCHAEMIA [None]
  - PELVIC ABSCESS [None]
  - SMALL INTESTINAL OBSTRUCTION [None]
  - VOMITING [None]
